FAERS Safety Report 4521005-6 (Version None)
Quarter: 2004Q4

REPORT INFORMATION
  Report Type: 
  Country: None (occurrence: None)
  Receive Date: 20041206
  Receipt Date: 20041122
  Transmission Date: 20050328
  Serious: Yes (Other)
  Sender: FDA-Public Use
  Company Number: 2004087363

PATIENT
  Age: 65 Year
  Sex: Female

DRUGS (7)
  1. CARDURA XL [Suspect]
     Indication: HYPERTENSION
     Dosage: 8 MG (8 MG, 1 IN 1 D), ORAL
     Route: 048
  2. BENDROFLUMETHIAZIDE (BENDROFLUMETHIAZIDE) [Concomitant]
  3. ATENOLOL [Concomitant]
  4. TELMISARTAN (TELMISARTAN) [Concomitant]
  5. GLIMEPIRIDE [Concomitant]
  6. METFORMIM (METFORMIN) [Concomitant]
  7. ASPIRIN [Concomitant]

REACTIONS (2)
  - CEREBROVASCULAR ACCIDENT [None]
  - INCONTINENCE [None]
